FAERS Safety Report 7284233-5 (Version None)
Quarter: 2011Q1

REPORT INFORMATION
  Report Type: 
  Country: None (occurrence: None)
  Receive Date: 20110209
  Receipt Date: 20110128
  Transmission Date: 20110831
  Serious: Yes (Hospitalization)
  Sender: FDA-Public Use
  Company Number: US-ASTRAZENECA-2011SE05088

PATIENT
  Age: 86 Year
  Sex: Female
  Weight: 63.5 kg

DRUGS (4)
  1. XANAX [Concomitant]
  2. PRILOSEC [Concomitant]
  3. SYMBICORT [Suspect]
     Dosage: TOTAL DAILY DOSAGE ANF FREQUENCY: UNKNOWN.
     Route: 055
     Dates: start: 20100901
  4. SPIRIVA [Concomitant]

REACTIONS (5)
  - HEART VALVE INCOMPETENCE [None]
  - ARTHRALGIA [None]
  - PAIN [None]
  - NECK PAIN [None]
  - CHEST DISCOMFORT [None]
